FAERS Safety Report 10340586 (Version 3)
Quarter: 2014Q3

REPORT INFORMATION
  Report Type: Spontaneous
  Country: SK (occurrence: SK)
  Receive Date: 20140724
  Receipt Date: 20140923
  Transmission Date: 20150326
  Serious: Yes (Death)
  Sender: FDA-Public Use
  Company Number: SK-GLAXOSMITHKLINE-B1017269A

PATIENT
  Age: 15 Year
  Sex: Female

DRUGS (1)
  1. RYTHMOL [Suspect]
     Active Substance: PROPAFENONE HYDROCHLORIDE
     Indication: PRODUCT USED FOR UNKNOWN INDICATION
     Route: 065
     Dates: start: 200702, end: 200702

REACTIONS (2)
  - Atrioventricular block [Fatal]
  - Poisoning [Fatal]

NARRATIVE: CASE EVENT DATE: 200702
